FAERS Safety Report 5381323-9 (Version None)
Quarter: 2007Q3

REPORT INFORMATION
  Report Type: 
  Country: None (occurrence: None)
  Receive Date: 20070702
  Receipt Date: 20070411
  Transmission Date: 20080115
  Serious: Yes (Other)
  Sender: FDA-Public Use
  Company Number: SPV1-2007-02052

PATIENT
  Sex: Female

DRUGS (1)
  1. EQUETRO [Suspect]

REACTIONS (6)
  - DISORIENTATION [None]
  - DIZZINESS [None]
  - HYPERSENSITIVITY [None]
  - LETHARGY [None]
  - RASH [None]
  - SWELLING [None]
